FAERS Safety Report 18444702 (Version 3)
Quarter: 2022Q4

REPORT INFORMATION
  Report Type: Spontaneous
  Country: JP (occurrence: JP)
  Receive Date: 20201030
  Receipt Date: 20221116
  Transmission Date: 20230113
  Serious: Yes (Other)
  Sender: FDA-Public Use
  Company Number: JP-PFIZER INC-2020415397

PATIENT
  Age: 26 Year
  Sex: Male
  Weight: 134 kg

DRUGS (9)
  1. VORICONAZOLE [Interacting]
     Active Substance: VORICONAZOLE
     Indication: Aspergillus infection
     Dosage: 400 MG, DAILY, DAY 1-16
     Route: 041
  2. VORICONAZOLE [Interacting]
     Active Substance: VORICONAZOLE
     Dosage: 800 MG, DAILY, DAY 16-17
     Route: 041
  3. VORICONAZOLE [Interacting]
     Active Substance: VORICONAZOLE
     Dosage: 400 MG, DAILY, DAY 19-55
     Route: 041
  4. VORICONAZOLE [Interacting]
     Active Substance: VORICONAZOLE
     Indication: Aspergillus infection
     Dosage: 500 MG, DAILY, DAY 56-64
     Route: 048
  5. VORICONAZOLE [Interacting]
     Active Substance: VORICONAZOLE
     Dosage: 600 MG, DAILY, DAY 65-229
     Route: 048
  6. ATORVASTATIN CALCIUM [Interacting]
     Active Substance: ATORVASTATIN CALCIUM
     Dosage: 5 MG, DAILY
  7. NIFEDIPINE [Concomitant]
     Active Substance: NIFEDIPINE
     Dosage: 80 MG, DAILY
  8. BISOPROLOL FUMARATE [Concomitant]
     Active Substance: BISOPROLOL FUMARATE
     Dosage: 0.625 MG, DAILY
  9. CALCIUM CARBONATE [Concomitant]
     Active Substance: CALCIUM CARBONATE
     Dosage: 3000 MG, DAILY

REACTIONS (4)
  - Drug interaction [Unknown]
  - Renal impairment [Recovering/Resolving]
  - Rhabdomyolysis [Recovered/Resolved]
  - Blood creatine phosphokinase increased [Recovered/Resolved]
